FAERS Safety Report 13055426 (Version 1)
Quarter: 2016Q4

REPORT INFORMATION
  Report Type: Spontaneous
  Country: JP (occurrence: JP)
  Receive Date: 20161222
  Receipt Date: 20161222
  Transmission Date: 20170207
  Serious: Yes (Life-Threatening, Hospitalization, Other)
  Sender: FDA-Public Use
  Company Number: JP-MYLANLABS-2016M1056587

PATIENT

DRUGS (10)
  1. AMIODARONE [Suspect]
     Active Substance: AMIODARONE
     Indication: ATRIAL FIBRILLATION
     Dosage: 25 MG/H
     Route: 050
  2. PROPOFOL. [Concomitant]
     Active Substance: PROPOFOL
     Indication: ANALGESIC THERAPY
     Dosage: 2 MG/KG/H; INFUSION
     Route: 050
  3. AMIODARONE [Interacting]
     Active Substance: AMIODARONE
     Dosage: 125 MG/30 MIN INFUSION; FOLLOWED BY FAST MAINTENANCE DOSING (50 MG/H)
     Route: 050
  4. MEPIVACAINE [Concomitant]
     Active Substance: MEPIVACAINE\MEPIVACAINE HYDROCHLORIDE
     Indication: ANALGESIC THERAPY
     Dosage: 20 ML OF 2 %
     Route: 065
  5. AMIODARONE [Interacting]
     Active Substance: AMIODARONE
     Dosage: 50MG/H INFUSION MAINTENANCE DOSE; THE INFUSION RATE WAS LATER REDUCED TO 25 MG/H
     Route: 050
  6. AMIODARONE [Interacting]
     Active Substance: AMIODARONE
     Dosage: 25 MG/H
     Route: 050
  7. AMIODARONE [Interacting]
     Active Substance: AMIODARONE
     Indication: TACHYCARDIA
     Dosage: 50MG/H INFUSION MAINTENANCE DOSE; THE INFUSION RATE WAS LATER REDUCED TO 25 MG/H
     Route: 050
  8. AMIODARONE [Interacting]
     Active Substance: AMIODARONE
     Dosage: 125 MG/30 MIN INFUSION; FOLLOWED BY FAST MAINTENANCE DOSING (50 MG/H)
     Route: 050
  9. DEXMEDETOMIDINE. [Interacting]
     Active Substance: DEXMEDETOMIDINE
     Indication: SEDATION
     Dosage: 0.3MICROG/KG/H INFUSION
     Route: 050
  10. ROPIVACAINE [Concomitant]
     Active Substance: ROPIVACAINE
     Indication: ANALGESIC THERAPY
     Dosage: 20 ML OF 0.75 %
     Route: 065

REACTIONS (6)
  - Atrioventricular block complete [Recovered/Resolved]
  - Electrocardiogram QT prolonged [Recovered/Resolved]
  - Sinus arrest [Recovered/Resolved]
  - Drug interaction [Recovered/Resolved]
  - Cardiac arrest [Recovered/Resolved]
  - Bradycardia [Recovered/Resolved]
